FAERS Safety Report 9532711 (Version 1)
Quarter: 2013Q2

REPORT INFORMATION
  Report Type: Spontaneous
  Country: US (occurrence: None)
  Receive Date: 20130503
  Receipt Date: 20130503
  Transmission Date: 20140414
  Serious: Yes (Other)
  Sender: FDA-Public Use
  Company Number: 1000042380

PATIENT
  Age: 71 Year
  Sex: Male

DRUGS (4)
  1. DALIRESP [Suspect]
     Indication: CHRONIC OBSTRUCTIVE PULMONARY DISEASE
     Route: 048
     Dates: start: 201207
  2. ADVAIR (SERETIDE) (SERETIDE) [Concomitant]
  3. SPIRIVA (TIOTROPIUM BROMIDE) (TIOTROPIUM BROMIDE) [Concomitant]
  4. METOPROLOL (METOPROLOL) (METOPROLOL) [Concomitant]

REACTIONS (2)
  - Anxiety [None]
  - Depression [None]
